FAERS Safety Report 7001734-5 (Version None)
Quarter: 2010Q3

REPORT INFORMATION
  Report Type: 
  Country: None (occurrence: None)
  Receive Date: 20100920
  Receipt Date: 20100917
  Transmission Date: 20110219
  Serious: Yes (Life-Threatening, Hospitalization)
  Sender: FDA-Public Use
  Company Number: GXKR2009DE05283

PATIENT
  Age: 67 Year
  Sex: Female
  Weight: 99 kg

DRUGS (11)
  1. ACETYLSALICYLIC ACID SRT [Interacting]
     Indication: ISCHAEMIC HEART DISEASE PROPHYLAXIS
     Dosage: 100 MG, QD
     Route: 048
     Dates: start: 20000101
  2. TRIMIPRAMINE MALEATE [Interacting]
     Indication: DEPRESSION
     Dosage: 100 MG, QD
     Dates: start: 20040101
  3. FURANTHRIL ^MEDPHANO^ [Interacting]
     Indication: HYPERTENSION
     Dosage: 40 MG, QD
     Dates: start: 20040101
  4. TELMISARTAN AND HYDROCHLOROTHIAZIDE [Interacting]
     Indication: HYPERTENSION
     Dosage: 1 DF, QD
     Dates: start: 20000101
  5. LITHIUM CARBONATE [Suspect]
     Indication: DEPRESSION
     Dosage: 100 MG, BID
     Dates: start: 20040101, end: 20081108
  6. AKINETON [Concomitant]
  7. ALLOPURINOL [Concomitant]
  8. BERLTHYROX [Concomitant]
  9. BISOPROLOL [Concomitant]
  10. NOVONORM [Concomitant]
  11. PANTOPRAZOLE SODIUM [Concomitant]

REACTIONS (1)
  - THERAPEUTIC AGENT TOXICITY [None]
